FAERS Safety Report 5201415-4 (Version None)
Quarter: 2007Q1

REPORT INFORMATION
  Report Type: 
  Country: None (occurrence: None)
  Receive Date: 20070104
  Receipt Date: 20061219
  Transmission Date: 20070707
  Serious: Yes (Other)
  Sender: FDA-Public Use
  Company Number: IND-AE-06-SAN-052

PATIENT
  Age: 68 Year
  Sex: Female
  Weight: 89 kg

DRUGS (6)
  1. SANCTURA [Suspect]
     Indication: STRESS URINARY INCONTINENCE
     Dosage: 20MG ORAL
     Route: 048
     Dates: start: 20061107, end: 20061121
  2. SANCTURA [Suspect]
     Indication: URGE INCONTINENCE
     Dosage: 20MG ORAL
     Route: 048
     Dates: start: 20061107, end: 20061121
  3. CIPROFLOXACIN [Concomitant]
  4. OXYBUTYNIN [Concomitant]
  5. PAROXETINE HCL [Concomitant]
  6. TRIMETHOPRIM [Concomitant]

REACTIONS (1)
  - ATRIAL FIBRILLATION [None]
